FAERS Safety Report 15111742 (Version 2)
Quarter: 2019Q4

REPORT INFORMATION
  Report Type: Spontaneous
  Country: US (occurrence: US)
  Receive Date: 20180705
  Receipt Date: 20191226
  Transmission Date: 20200122
  Serious: No
  Sender: FDA-Public Use
  Company Number: US-PFIZER INC-2017554823

PATIENT
  Age: 47 Year
  Sex: Female

DRUGS (3)
  1. DOCETAXEL. [Suspect]
     Active Substance: DOCETAXEL
     Indication: BREAST CANCER FEMALE
     Dosage: UNK, CYCLIC (4 CYCLES), EVERY THREE WEEKS
     Dates: start: 20120928, end: 20121130
  2. DOCETAXEL. [Suspect]
     Active Substance: DOCETAXEL
     Dosage: UNK
     Dates: start: 20120928, end: 20121130
  3. PARAPLATIN [Concomitant]
     Active Substance: CARBOPLATIN
     Dosage: UNK

REACTIONS (4)
  - Hair colour changes [Not Recovered/Not Resolved]
  - Hair texture abnormal [Not Recovered/Not Resolved]
  - Hair disorder [Not Recovered/Not Resolved]
  - Alopecia [Not Recovered/Not Resolved]

NARRATIVE: CASE EVENT DATE: 201210
